FAERS Safety Report 8908983 (Version 1)
Quarter: 2012Q4

REPORT INFORMATION
  Report Type: 
  Country: DE (occurrence: DE)
  Receive Date: 20121114
  Receipt Date: 20121114
  Transmission Date: 20130627
  Serious: Yes (Hospitalization, Other)
  Sender: FDA-Public Use
  Company Number: PHHY2012DE103540

PATIENT
  Sex: Male

DRUGS (3)
  1. RASILEZ [Suspect]
     Indication: HYPERTENSION
     Dosage: 300 mg, UNK
     Dates: start: 2009
  2. RASILEZ [Suspect]
     Dosage: 300 mg, UNK
  3. RASILEZ [Suspect]
     Dosage: 300 mg, UNK

REACTIONS (9)
  - Panic attack [Not Recovered/Not Resolved]
  - Fear of death [Not Recovered/Not Resolved]
  - Palpitations [Not Recovered/Not Resolved]
  - Hyperhidrosis [Not Recovered/Not Resolved]
  - Malaise [Not Recovered/Not Resolved]
  - Dyspnoea [Not Recovered/Not Resolved]
  - Stress [Unknown]
  - Blood pressure increased [Not Recovered/Not Resolved]
  - Accident [Unknown]
